FAERS Safety Report 5512600-6 (Version None)
Quarter: 2007Q4

REPORT INFORMATION
  Report Type: 
  Country: None (occurrence: None)
  Receive Date: 20071108
  Receipt Date: 20071108
  Transmission Date: 20080405
  Serious: Yes (Other)
  Sender: FDA-Public Use
  Company Number: None

PATIENT
  Sex: Male
  Weight: 77.1115 kg

DRUGS (7)
  1. AMLODIPINE [Suspect]
     Indication: CARDIAC FAILURE
     Dosage: 5 MG ONCE DAILY PO
     Route: 048
     Dates: start: 20071020, end: 20071107
  2. AMLODIPINE [Suspect]
     Indication: HYPERTENSION
     Dosage: 5 MG ONCE DAILY PO
     Route: 048
     Dates: start: 20071020, end: 20071107
  3. METFORMIN HYDROCHLORIDE [Concomitant]
  4. GLYBURIDE [Concomitant]
  5. FLOMAX [Concomitant]
  6. PROPRANOLOL [Concomitant]
  7. LIPITOR [Concomitant]

REACTIONS (2)
  - OEDEMA PERIPHERAL [None]
  - PHARMACEUTICAL PRODUCT COMPLAINT [None]
